FAERS Safety Report 15440443 (Version 1)
Quarter: 2018Q3

REPORT INFORMATION
  Report Type: Spontaneous
  Country: GB (occurrence: GB)
  Receive Date: 20180928
  Receipt Date: 20180928
  Transmission Date: 20181010
  Serious: Yes (Other)
  Sender: FDA-Public Use
  Company Number: PHHY2018GB107748

PATIENT
  Age: 47 Year
  Sex: Male

DRUGS (4)
  1. PAZOPANIB [Suspect]
     Active Substance: PAZOPANIB
     Indication: METASTASES TO LUNG
  2. TRABECTEDIN [Concomitant]
     Active Substance: TRABECTEDIN
     Indication: SYNOVIAL SARCOMA METASTATIC
     Dosage: 4 CYCLES
     Route: 065
  3. TRABECTEDIN [Concomitant]
     Active Substance: TRABECTEDIN
     Indication: METASTASES TO LUNG
  4. PAZOPANIB [Suspect]
     Active Substance: PAZOPANIB
     Indication: SYNOVIAL SARCOMA METASTATIC
     Dosage: UNK
     Route: 065

REACTIONS (2)
  - Synovial sarcoma metastatic [Unknown]
  - Malignant neoplasm progression [Unknown]
